FAERS Safety Report 8408908-7 (Version None)
Quarter: 2012Q2

REPORT INFORMATION
  Report Type: 
  Country: None (occurrence: None)
  Receive Date: 20120604
  Receipt Date: 20120319
  Transmission Date: 20120825
  Serious: No
  Sender: FDA-Public Use
  Company Number: US-NOVEN-12US004316

PATIENT

DRUGS (1)
  1. DAYTRANA [Suspect]
     Indication: ATTENTION DEFICIT/HYPERACTIVITY DISORDER
     Dosage: 1 PATCH DAILY
     Route: 062
     Dates: start: 20120301

REACTIONS (2)
  - OFF LABEL USE [None]
  - NO ADVERSE EVENT [None]
